FAERS Safety Report 11335028 (Version 2)
Quarter: 2015Q3

REPORT INFORMATION
  Report Type: Spontaneous
  Country: US (occurrence: US)
  Receive Date: 20150804
  Receipt Date: 20150810
  Transmission Date: 20151125
  Serious: Yes (Other)
  Sender: FDA-Public Use
  Company Number: US-PFIZER INC-2015254749

PATIENT
  Age: 77 Year
  Sex: Female

DRUGS (1)
  1. GABAPENTIN. [Suspect]
     Active Substance: GABAPENTIN
     Dosage: 400 MG, UNK

REACTIONS (9)
  - Activities of daily living impaired [Unknown]
  - Mental impairment [Unknown]
  - Somnolence [Unknown]
  - Pain [Unknown]
  - Drug ineffective [Unknown]
  - Burning sensation [Unknown]
  - Swelling [Unknown]
  - Middle insomnia [Unknown]
  - Neuralgia [Unknown]
